FAERS Safety Report 5761825-3 (Version None)
Quarter: 2008Q2

REPORT INFORMATION
  Report Type: 
  Country: None (occurrence: None)
  Receive Date: 20080606
  Receipt Date: 20080525
  Transmission Date: 20081010
  Serious: Yes (Other)
  Sender: FDA-Public Use
  Company Number: CH-PFIZER INC-2008045790

PATIENT
  Age: 41 Year
  Sex: Female

DRUGS (2)
  1. CHANTIX [Suspect]
  2. NICOTINE [Concomitant]

REACTIONS (3)
  - CHEST PAIN [None]
  - DYSPEPSIA [None]
  - NAUSEA [None]
